FAERS Safety Report 25179946 (Version 3)
Quarter: 2025Q2

REPORT INFORMATION
  Report Type: Report from Study
  Country: US (occurrence: US)
  Receive Date: 20250409
  Receipt Date: 20250603
  Transmission Date: 20250717
  Serious: Yes (Death, Other)
  Sender: TAIHO ONCOLOGY INC
  Company Number: US-TAIHOP-2024-010742

PATIENT
  Age: 72 Year
  Sex: Male

DRUGS (33)
  1. LONSURF [Suspect]
     Active Substance: TIPIRACIL HYDROCHLORIDE\TRIFLURIDINE
     Indication: Colon cancer
     Dosage: CYCLE UNKNOWN
     Route: 048
     Dates: start: 20241111
  2. LORAZEPAM [Concomitant]
     Active Substance: LORAZEPAM
     Indication: Product used for unknown indication
  3. ENSURE ENLIV [Concomitant]
     Indication: Product used for unknown indication
  4. ACTOS [Concomitant]
     Active Substance: PIOGLITAZONE HYDROCHLORIDE
     Indication: Product used for unknown indication
  5. ASPIRIN [Concomitant]
     Active Substance: ASPIRIN
     Indication: Product used for unknown indication
  6. CALCIUM D-500 [Concomitant]
     Indication: Product used for unknown indication
  7. CHLORHEXIDINE GLUCONATE [Concomitant]
     Active Substance: CHLORHEXIDINE GLUCONATE
     Indication: Product used for unknown indication
  8. CLOPIDOGREL [Concomitant]
     Active Substance: CLOPIDOGREL BISULFATE
     Indication: Product used for unknown indication
  9. DEXAMETHASONE [Concomitant]
     Active Substance: DEXAMETHASONE
     Indication: Product used for unknown indication
  10. DIGOXIN [Concomitant]
     Active Substance: DIGOXIN
     Indication: Product used for unknown indication
  11. JARDIANCE [Concomitant]
     Active Substance: EMPAGLIFLOZIN
     Indication: Product used for unknown indication
  12. LIDOCAINE VISC [Concomitant]
     Indication: Product used for unknown indication
  13. LOPERAMIDE [Concomitant]
     Active Substance: LOPERAMIDE
     Indication: Product used for unknown indication
  14. LOSARTAN POTASSIUM [Concomitant]
     Active Substance: LOSARTAN POTASSIUM
     Indication: Product used for unknown indication
  15. LUTEIN [Concomitant]
     Active Substance: LUTEIN
     Indication: Product used for unknown indication
  16. METOPROLOL TARTRATE [Concomitant]
     Active Substance: METOPROLOL TARTRATE
     Indication: Product used for unknown indication
  17. MIDODRINE [Concomitant]
     Active Substance: MIDODRINE
     Indication: Product used for unknown indication
  18. NOVOLOG FLEXEPEN [Concomitant]
     Indication: Product used for unknown indication
  19. POTASSIUM IODIDE [Concomitant]
     Active Substance: POTASSIUM IODIDE
     Indication: Product used for unknown indication
  20. PROCHLORPER [Concomitant]
     Indication: Product used for unknown indication
  21. ROSUVASTATIN [Concomitant]
     Active Substance: ROSUVASTATIN
     Indication: Product used for unknown indication
  22. SERTRALINE [Concomitant]
     Active Substance: SERTRALINE HYDROCHLORIDE
     Indication: Product used for unknown indication
  23. MAGNESIUM CHLORIDE [Concomitant]
     Active Substance: MAGNESIUM CHLORIDE
     Indication: Product used for unknown indication
  24. TRAMADOL HCL [Concomitant]
     Active Substance: TRAMADOL HYDROCHLORIDE
     Indication: Product used for unknown indication
  25. VITAMIN B12 [Concomitant]
     Active Substance: CYANOCOBALAMIN
     Indication: Product used for unknown indication
  26. HYDROXYZINE HYDROCHLORIDE [Concomitant]
     Active Substance: HYDROXYZINE HYDROCHLORIDE
     Indication: Product used for unknown indication
  27. LIDO/PRILOCN [Concomitant]
     Indication: Product used for unknown indication
  28. OLANZAPINE [Concomitant]
     Active Substance: OLANZAPINE
     Indication: Product used for unknown indication
  29. POTASSIUM CHLORIDE [Concomitant]
     Active Substance: POTASSIUM CHLORIDE
     Indication: Product used for unknown indication
  30. PROMETHAZINE [Concomitant]
     Active Substance: PROMETHAZINE HYDROCHLORIDE
     Indication: Product used for unknown indication
  31. TERBINAFINE [Concomitant]
     Active Substance: TERBINAFINE
     Indication: Product used for unknown indication
  32. PIOGLITAZONE [Concomitant]
     Active Substance: PIOGLITAZONE
     Indication: Product used for unknown indication
  33. RYBELSUS [Concomitant]
     Active Substance: SEMAGLUTIDE
     Indication: Product used for unknown indication

REACTIONS (10)
  - Death [Fatal]
  - Hallucination, visual [Unknown]
  - Hypersomnia [Not Recovered/Not Resolved]
  - Nausea [Not Recovered/Not Resolved]
  - Fatigue [Not Recovered/Not Resolved]
  - Therapy interrupted [Unknown]
  - White blood cell count decreased [Unknown]
  - Arthralgia [Unknown]
  - Muscle spasms [Unknown]
  - Hypoaesthesia [Unknown]

NARRATIVE: CASE EVENT DATE: 20250201
